FAERS Safety Report 5944227-6 (Version None)
Quarter: 2008Q4

REPORT INFORMATION
  Report Type: 
  Country: None (occurrence: None)
  Receive Date: 20081104
  Receipt Date: 20081027
  Transmission Date: 20090506
  Serious: Yes (Hospitalization)
  Sender: FDA-Public Use
  Company Number: 2008SP018085

PATIENT
  Age: 73 Year
  Sex: Male
  Weight: 68.0396 kg

DRUGS (8)
  1. PEG-INTRON [Suspect]
     Indication: HEPATITIS C
     Dates: start: 20080314, end: 20080903
  2. RIBAVIRIN [Suspect]
     Indication: HEPATITIS C
     Dosage: ; PO
     Route: 048
     Dates: start: 20080314
  3. DOMPERIDONE [Concomitant]
  4. CLONIDINE [Concomitant]
  5. OMEPRAZOLE [Concomitant]
  6. SERTRALINE [Concomitant]
  7. METHADONE HCL [Concomitant]
  8. FOLIC ACID [Concomitant]

REACTIONS (16)
  - ANAEMIA [None]
  - CARDIAC FAILURE CONGESTIVE [None]
  - CARDIOMYOPATHY [None]
  - COUGH [None]
  - DYSPHAGIA [None]
  - DYSPNOEA [None]
  - FATIGUE [None]
  - HEART RATE INCREASED [None]
  - HEPATITIS C [None]
  - HYPERTENSION [None]
  - HYPONATRAEMIA [None]
  - HYPOTHYROIDISM [None]
  - LEUKOPENIA [None]
  - OROPHARYNGEAL PAIN [None]
  - PNEUMONIA [None]
  - PYREXIA [None]
